FAERS Safety Report 7107575-2 (Version None)
Quarter: 2010Q4

REPORT INFORMATION
  Report Type: 
  Country: None (occurrence: None)
  Receive Date: 20101117
  Receipt Date: 20101109
  Transmission Date: 20110411
  Serious: No
  Sender: FDA-Public Use
  Company Number: US-PFIZER INC-2010144103

PATIENT
  Sex: Male

DRUGS (3)
  1. LYRICA [Suspect]
     Indication: BACK PAIN
     Dosage: 75 MG, 2X/DAY
  2. LYRICA [Suspect]
     Dosage: 75MG IN THE MORNING AND 150MG AT NIGHT
  3. LYRICA [Suspect]
     Dosage: 100MG IN THE MORNING AND 200MG AT NIGHT

REACTIONS (1)
  - PAIN [None]
